FAERS Safety Report 11859332 (Version 1)
Quarter: 2015Q4

REPORT INFORMATION
  Report Type: Spontaneous
  Country: KR (occurrence: KR)
  Receive Date: 20151222
  Receipt Date: 20151222
  Transmission Date: 20160305
  Serious: Yes (Hospitalization)
  Sender: FDA-Public Use
  Company Number: KR-AMGEN-KORCT2015136509

PATIENT
  Age: 42 Year
  Sex: Female
  Weight: 69 kg

DRUGS (4)
  1. CYCLOPHOSPHAMIDE. [Concomitant]
     Active Substance: CYCLOPHOSPHAMIDE
     Dosage: 895 MG, UNK
     Route: 042
     Dates: start: 20151205, end: 20151205
  2. DOCETAXEL. [Concomitant]
     Active Substance: DOCETAXEL
     Dosage: 134 MG, UNK
     Route: 042
     Dates: start: 20151205, end: 20151205
  3. DOXORUBICIN [Concomitant]
     Active Substance: DOXORUBICIN
     Dosage: 89 MG, UNK
     Route: 042
     Dates: start: 20151205, end: 20151205
  4. G-LASTA [Suspect]
     Active Substance: PEGFILGRASTIM
     Indication: FEBRILE NEUTROPENIA
     Dosage: 6MG, Q3WK
     Route: 058
     Dates: start: 20151206

REACTIONS (1)
  - Neutropenia [Recovered/Resolved]

NARRATIVE: CASE EVENT DATE: 20151211
